FAERS Safety Report 10011467 (Version 2)
Quarter: 2014Q2

REPORT INFORMATION
  Report Type: Spontaneous
  Country: BR (occurrence: BR)
  Receive Date: 20140314
  Receipt Date: 20140410
  Transmission Date: 20141212
  Serious: Yes (Other)
  Sender: FDA-Public Use
  Company Number: BR-NOVOPROD-402550

PATIENT
  Sex: Male
  Weight: 75 kg

DRUGS (9)
  1. VICTOZA [Suspect]
     Indication: TYPE 2 DIABETES MELLITUS
     Dosage: UNK
     Route: 065
     Dates: start: 201402
  2. VICTOZA [Suspect]
     Dosage: UNK (MINIMUM DOSE OF 0.6 MG)
     Route: 065
     Dates: end: 20140324
  3. AAS [Concomitant]
     Indication: INFARCTION
     Dosage: 1 TAB (81 MG)
     Route: 065
  4. CRESTOR [Concomitant]
     Indication: BLOOD CHOLESTEROL
     Dosage: 1 TAB (10 MG)
     Route: 065
  5. CRESTOR [Concomitant]
     Indication: BLOOD TRIGLYCERIDES
  6. ALDACTONE                          /00006201/ [Concomitant]
     Indication: DIURETIC THERAPY
     Dosage: 1 TAB
     Route: 065
     Dates: start: 201403
  7. XARELTO [Concomitant]
     Indication: ANTICOAGULANT THERAPY
     Dosage: 1 TAB
     Route: 065
     Dates: start: 20131223
  8. AMIODARONE [Concomitant]
     Indication: ARRHYTHMIA
     Dosage: TID
     Route: 065
     Dates: start: 201402
  9. VASTAREL [Concomitant]
     Dosage: 2 TAB
     Route: 065
     Dates: start: 201402

REACTIONS (3)
  - Cardiac failure [Unknown]
  - Viral infection [Recovering/Resolving]
  - Weight decreased [Unknown]
